FAERS Safety Report 15846845 (Version 2)
Quarter: 2019Q1

REPORT INFORMATION
  Report Type: Spontaneous
  Country: NL (occurrence: NL)
  Receive Date: 20190121
  Receipt Date: 20190122
  Transmission Date: 20190417
  Serious: Yes (Hospitalization, Congenital Anomaly, Other)
  Sender: FDA-Public Use
  Company Number: NL-TEVA-2019-NL-1001076

PATIENT
  Sex: Female

DRUGS (3)
  1. LEFLUNOMIDE TABLET, 20 MG (MILLIGRAM) [Suspect]
     Active Substance: LEFLUNOMIDE
     Indication: RHEUMATOID ARTHRITIS
     Dosage: 20 MILLIGRAM DAILY;
     Route: 065
  2. SALBUTAMOL [Concomitant]
     Active Substance: ALBUTEROL
     Route: 065
  3. PREDNISOLON 5MG [Concomitant]
     Dosage: 5 MILLIGRAM DAILY;
     Route: 065

REACTIONS (4)
  - Single umbilical artery [Unknown]
  - Ultrasound scan abnormal [Unknown]
  - Maternal exposure during pregnancy [Unknown]
  - Foetal growth restriction [Unknown]
